FAERS Safety Report 25175005 (Version 2)
Quarter: 2025Q2

REPORT INFORMATION
  Report Type: Spontaneous
  Country: GB (occurrence: GB)
  Receive Date: 20250408
  Receipt Date: 20250414
  Transmission Date: 20250717
  Serious: Yes (Other)
  Sender: AMERICAN REGENT
  Company Number: GB-AMERICAN REGENT INC-2025001452

PATIENT
  Age: 28 Year
  Sex: Female
  Weight: 73 kg

DRUGS (2)
  1. FERINJECT [Suspect]
     Active Substance: FERRIC CARBOXYMALTOSE
     Indication: Adverse drug reaction
     Route: 065
     Dates: start: 20250330, end: 20250330
  2. FERINJECT [Suspect]
     Active Substance: FERRIC CARBOXYMALTOSE
     Indication: Blood iron decreased

REACTIONS (8)
  - Visual impairment [Recovered/Resolved]
  - Maternal exposure during breast feeding [Unknown]
  - Pain [Recovered/Resolved]
  - Oxygen saturation decreased [Recovered/Resolved]
  - Chest pain [Recovered/Resolved]
  - Dizziness [Recovered/Resolved]
  - Back pain [Recovered/Resolved]
  - Dyspnoea [Recovered/Resolved]

NARRATIVE: CASE EVENT DATE: 20250330
